FAERS Safety Report 6355717-9 (Version None)
Quarter: 2009Q3

REPORT INFORMATION
  Report Type: 
  Country: None (occurrence: None)
  Receive Date: 20090910
  Receipt Date: 20090902
  Transmission Date: 20100115
  Serious: Yes (Hospitalization)
  Sender: FDA-Public Use
  Company Number: GXKR2009GB09843

PATIENT
  Age: 58 Year
  Sex: Male

DRUGS (4)
  1. ATENOLOL [Suspect]
     Indication: WOLFF-PARKINSON-WHITE SYNDROME
     Dosage: 25 MG, ORAL
     Route: 048
     Dates: start: 20070601
  2. DEPAKOTE [Concomitant]
  3. OLANZAPINE [Concomitant]
  4. SIMVASTATIN [Concomitant]

REACTIONS (4)
  - COLD SWEAT [None]
  - HYPOTENSION [None]
  - NASOPHARYNGITIS [None]
  - PALLOR [None]
